FAERS Safety Report 5158744-2 (Version None)
Quarter: 2006Q4

REPORT INFORMATION
  Report Type: 
  Country: None (occurrence: None)
  Receive Date: 20061116
  Receipt Date: 20061031
  Transmission Date: 20070319
  Serious: Yes (Other)
  Sender: FDA-Public Use
  Company Number: 8020052

PATIENT
  Age: 80 Year
  Sex: Male

DRUGS (18)
  1. PREDNISOLONE [Suspect]
     Dosage: 15 MG 1/D
     Dates: end: 20060722
  2. RISODRONATE [Suspect]
     Dosage: 35 MG 1/W PO
     Route: 048
     Dates: end: 20060722
  3. WARFARIN SODIUM [Suspect]
     Indication: ATRIAL FIBRILLATION
     Dates: end: 20060722
  4. WARFARIN SODIUM [Suspect]
     Indication: PROPHYLAXIS
     Dates: end: 20060722
  5. ATORVASTATIN CALCIUM [Concomitant]
  6. BENDROFLUAZIDE [Concomitant]
  7. BUDENOSIDE [Concomitant]
  8. CACIT [Concomitant]
  9. CLARITHROMYCIN [Concomitant]
  10. CO-DYDRAMOL [Concomitant]
  11. DIGOXIN [Concomitant]
  12. FERROUS SULFATE TAB [Concomitant]
  13. IPRATROPIUM BROMIDE [Concomitant]
  14. MOVICOL [Concomitant]
  15. OMEPRAZOLE [Concomitant]
  16. SALBUTAMOL [Concomitant]
  17. THEOPHYLLINE [Concomitant]
  18. XALATAN [Concomitant]

REACTIONS (2)
  - HAEMATEMESIS [None]
  - OESOPHAGEAL ULCER [None]
